FAERS Safety Report 25305577 (Version 2)
Quarter: 2025Q2

REPORT INFORMATION
  Report Type: Spontaneous
  Country: GB (occurrence: GB)
  Receive Date: 20250513
  Receipt Date: 20250514
  Transmission Date: 20250716
  Serious: No
  Sender: TERSERA THERAPEUTICS
  Company Number: GB-AstraZeneca-CH-00863365A

PATIENT

DRUGS (3)
  1. GOSERELIN [Suspect]
     Active Substance: GOSERELIN
     Indication: Endometriosis
     Route: 065
     Dates: start: 20250506
  2. ZOLADEX [Suspect]
     Active Substance: GOSERELIN ACETATE
     Indication: Endometriosis
     Route: 065
  3. Decapeptyl [Concomitant]
     Indication: Product used for unknown indication
     Route: 065

REACTIONS (3)
  - Amenorrhoea [Unknown]
  - Haemorrhage [Unknown]
  - Product administration error [Unknown]
